FAERS Safety Report 11215220 (Version 1)
Quarter: 2015Q2

REPORT INFORMATION
  Report Type: Spontaneous
  Country: CZ (occurrence: CZ)
  Receive Date: 20150624
  Receipt Date: 20150624
  Transmission Date: 20150821
  Serious: Yes (Other)
  Sender: FDA-Public Use
  Company Number: CZ-TEVA-571939ISR

PATIENT
  Age: 72 Year
  Sex: Male

DRUGS (5)
  1. CYCLOPHOSPHAMIDE. [Concomitant]
     Active Substance: CYCLOPHOSPHAMIDE
     Indication: CASTLEMAN^S DISEASE
     Dosage: TWO CYCLES
     Dates: start: 20131112, end: 20131216
  2. PREDNISONE. [Concomitant]
     Active Substance: PREDNISONE
     Indication: CASTLEMAN^S DISEASE
     Dosage: TWO CYCLES
     Dates: start: 20131112, end: 20131216
  3. ADRIAMYCIN [Concomitant]
     Active Substance: DOXORUBICIN HYDROCHLORIDE
     Indication: CASTLEMAN^S DISEASE
     Dosage: TWO CYCLES
     Dates: start: 20131112, end: 20131216
  4. VINCRISTINE [Suspect]
     Active Substance: VINCRISTINE
     Indication: CASTLEMAN^S DISEASE
     Dosage: TWO CYCLES
     Dates: start: 20131112, end: 20131216
  5. MABTHERA [Concomitant]
     Active Substance: RITUXIMAB
     Dates: start: 20131112, end: 201408

REACTIONS (2)
  - Lung infection [Recovered/Resolved]
  - Neutropenia [Recovered/Resolved]

NARRATIVE: CASE EVENT DATE: 2013
